FAERS Safety Report 20793090 (Version 1)
Quarter: 2022Q2

REPORT INFORMATION
  Report Type: Spontaneous
  Country: US (occurrence: US)
  Receive Date: 20220506
  Receipt Date: 20220506
  Transmission Date: 20220721
  Serious: No
  Sender: FDA-Public Use
  Company Number: US-UCBSA-2021023384

PATIENT
  Age: 59 Year
  Sex: Female

DRUGS (3)
  1. CIMZIA [Suspect]
     Active Substance: CERTOLIZUMAB PEGOL
     Indication: Crohn^s disease
     Dosage: 200 MILLIGRAM, EV 4 WEEKS
     Route: 058
     Dates: start: 20170125
  2. AMOXICILLIN [Suspect]
     Active Substance: AMOXICILLIN
     Indication: Illness
     Dosage: UNK
     Dates: start: 20210508, end: 20210509
  3. CODEINE [Suspect]
     Active Substance: CODEINE
     Indication: Illness
     Dosage: UNK
     Dates: start: 20210508, end: 20210509

REACTIONS (2)
  - Malaise [Unknown]
  - Product use issue [Unknown]

NARRATIVE: CASE EVENT DATE: 20170125
